FAERS Safety Report 8891217 (Version 2)
Quarter: 2013Q1

REPORT INFORMATION
  Report Type: Report from Study
  Country: CA (occurrence: CA)
  Receive Date: 20121107
  Receipt Date: 20130124
  Transmission Date: 20140127
  Serious: Yes (Hospitalization)
  Sender: FDA-Public Use
  Company Number: CA-ROCHE-1152659

PATIENT
  Age: 63 Year
  Sex: Female
  Weight: 48 kg

DRUGS (12)
  1. ACTEMRA [Suspect]
     Indication: RHEUMATOID ARTHRITIS
     Route: 042
     Dates: start: 20110504
  2. ACTEMRA [Suspect]
     Route: 042
  3. CELEBREX [Concomitant]
     Route: 065
  4. ASPIRIN [Concomitant]
     Route: 065
  5. VITAMIN D [Concomitant]
     Route: 065
  6. PLAQUENIL [Concomitant]
     Dosage: 200 MG ALTERING WITH 400 MG
     Route: 065
  7. ELTROXIN [Concomitant]
     Route: 065
  8. PREMARIN [Concomitant]
     Route: 065
  9. DOMPERIDONE [Concomitant]
     Route: 065
  10. VITAMIN B12 [Concomitant]
     Dosage: 1 CC
     Route: 065
  11. BUTRANS [Concomitant]
     Route: 065
  12. CALCIUM [Concomitant]
     Route: 065

REACTIONS (6)
  - Abdominal pain upper [Recovered/Resolved]
  - Fatigue [Recovered/Resolved]
  - Vomiting [Recovered/Resolved]
  - Pancreatitis acute [Unknown]
  - Haemoglobin decreased [Unknown]
  - Vitamin B12 deficiency [Unknown]
